FAERS Safety Report 7867282-5 (Version None)
Quarter: 2011Q4

REPORT INFORMATION
  Report Type: 
  Country: None (occurrence: None)
  Receive Date: 20111028
  Receipt Date: 20111020
  Transmission Date: 20120403
  Serious: Yes (Other)
  Sender: FDA-Public Use
  Company Number: PHHY2011BR94193

PATIENT
  Sex: Female

DRUGS (3)
  1. METFORMIN HCL [Suspect]
     Dosage: 3 DF/DAY
     Route: 048
  2. JANUVIA [Concomitant]
     Route: 048
  3. EXFORGE [Concomitant]

REACTIONS (4)
  - EAR DISORDER [None]
  - BLOOD GLUCOSE ABNORMAL [None]
  - DRUG INEFFECTIVE [None]
  - HYPERTENSION [None]
